FAERS Safety Report 4539696-2 (Version None)
Quarter: 2004Q4

REPORT INFORMATION
  Report Type: 
  Country: None (occurrence: None)
  Receive Date: 20041223
  Receipt Date: 20041216
  Transmission Date: 20050328
  Serious: Yes (Hospitalization, Other)
  Sender: FDA-Public Use
  Company Number: FRWYE289817DEC04

PATIENT
  Age: 29 Year
  Sex: Female

DRUGS (2)
  1. EFFEXOR [Suspect]
     Indication: DEPRESSION
     Dosage: 37.5 MG 2X PER 1 DAY ORAL
     Route: 048
     Dates: start: 20041101, end: 20041101
  2. MIRTAZAPINE [Suspect]
     Indication: DEPRESSION
     Dosage: 7.5 MG 1X PER 1 DAY
     Route: 048
     Dates: start: 19990101, end: 20041101

REACTIONS (2)
  - PSYCHOTIC DISORDER [None]
  - STRESS SYMPTOMS [None]
